FAERS Safety Report 10538560 (Version 2)
Quarter: 2014Q4

REPORT INFORMATION
  Report Type: Spontaneous
  Country: US (occurrence: US)
  Receive Date: 20141023
  Receipt Date: 20141023
  Transmission Date: 20150529
  Serious: Yes (Death, Hospitalization, Other)
  Sender: FDA-Public Use
  Company Number: US-GLAXOSMITHKLINE-A0873026A

PATIENT
  Age: 67 Year
  Sex: Female

DRUGS (1)
  1. AVANDIA [Suspect]
     Active Substance: ROSIGLITAZONE MALEATE
     Indication: TYPE 2 DIABETES MELLITUS
     Dosage: 2 MG, QD
     Route: 048
     Dates: start: 20050519, end: 20070911

REACTIONS (5)
  - Myocardial infarction [Unknown]
  - Cardiac disorder [Unknown]
  - Coronary artery disease [Unknown]
  - Death [Fatal]
  - Coronary artery bypass [Unknown]

NARRATIVE: CASE EVENT DATE: 200606
